FAERS Safety Report 4668589-5 (Version None)
Quarter: 2005Q2

REPORT INFORMATION
  Report Type: 
  Country: None (occurrence: None)
  Receive Date: 20050523
  Receipt Date: 20040831
  Transmission Date: 20051028
  Serious: Yes (Other)
  Sender: FDA-Public Use
  Company Number: PHNU2004DE03082

PATIENT
  Age: 48 Year
  Sex: Male
  Weight: 86 kg

DRUGS (3)
  1. INTRON A [Concomitant]
     Indication: PLASMACYTOMA
     Dosage: 6 UNK, QW3
     Route: 058
     Dates: start: 20040203, end: 20040928
  2. PARACETAMOL [Concomitant]
     Indication: PYREXIA
     Dosage: 1000 MG, PRN
     Route: 065
  3. ZOMETA [Suspect]
     Indication: PLASMACYTOMA
     Dosage: 4 MG, UNK
     Route: 042
     Dates: start: 20030116, end: 20040617

REACTIONS (2)
  - OSTEONECROSIS [None]
  - TOOTH DISORDER [None]
